FAERS Safety Report 14301204 (Version 1)
Quarter: 2017Q4

REPORT INFORMATION
  Report Type: Spontaneous
  Country: US (occurrence: US)
  Receive Date: 20171219
  Receipt Date: 20171219
  Transmission Date: 20180321
  Serious: Yes (Hospitalization, Other)
  Sender: FDA-Public Use
  Company Number: US-ELI_LILLY_AND_COMPANY-US201712005808

PATIENT
  Sex: Male

DRUGS (3)
  1. HUMALOG [Suspect]
     Active Substance: INSULIN LISPRO
     Indication: DIABETES MELLITUS
     Dosage: UNK, UNKNOWN
     Route: 065
     Dates: start: 2013, end: 2015
  2. INSULIN, HUMAN [Suspect]
     Active Substance: INSULIN HUMAN
     Indication: DIABETES MELLITUS
     Dosage: AROUND 500 UNITS, DAILY
     Route: 065
     Dates: start: 201708
  3. INSULIN, HUMAN [Suspect]
     Active Substance: INSULIN HUMAN
     Indication: DIABETES MELLITUS
     Dosage: 80-100 UNITS
     Route: 065
     Dates: start: 2015, end: 201708

REACTIONS (9)
  - Blood glucose increased [Unknown]
  - Acne [Recovered/Resolved]
  - Pancreatitis [Recovered/Resolved]
  - Nephrolithiasis [Not Recovered/Not Resolved]
  - Blood glucose decreased [Recovered/Resolved]
  - Insulin resistance [Not Recovered/Not Resolved]
  - Drug ineffective [Not Recovered/Not Resolved]
  - Sepsis [Recovered/Resolved]
  - Chest pain [Not Recovered/Not Resolved]

NARRATIVE: CASE EVENT DATE: 2013
